FAERS Safety Report 9858627 (Version 2)
Quarter: 2014Q1

REPORT INFORMATION
  Report Type: Spontaneous
  Country: BR (occurrence: BR)
  Receive Date: 20140131
  Receipt Date: 20140131
  Transmission Date: 20141002
  Serious: Yes (Other)
  Sender: FDA-Public Use
  Company Number: BR-SA-2013SA125652

PATIENT
  Sex: Female
  Weight: 70 kg

DRUGS (7)
  1. LANTUS [Suspect]
     Indication: DIABETES MELLITUS
     Dosage: 15 IU IN MORNING AND 5 IU IN NIGHT
     Route: 058
     Dates: start: 2004
  2. DEVICE NOS [Concomitant]
     Indication: DEVICE THERAPY
  3. TRANEXAMIC ACID [Concomitant]
     Indication: DEMENTIA ALZHEIMER^S TYPE
     Route: 048
  4. LOSARTAN [Concomitant]
     Indication: HYPERTENSION
     Dosage: STRENGTH: 50 MG
     Route: 048
  5. PRADAXA [Concomitant]
     Indication: DIABETES MELLITUS
     Dosage: STRENGTH: 150 MG
     Route: 048
  6. AMARYL [Concomitant]
     Indication: DIABETES MELLITUS
     Dosage: STRENGTH: 3 MG
     Route: 048
  7. JANUMET [Concomitant]
     Indication: DIABETES MELLITUS
     Dosage: STRENGTH: 50/850
     Route: 048

REACTIONS (4)
  - Dementia Alzheimer^s type [Not Recovered/Not Resolved]
  - Memory impairment [Not Recovered/Not Resolved]
  - Hyperglycaemia [Not Recovered/Not Resolved]
  - Off label use [Unknown]
